FAERS Safety Report 9166775 (Version 1)
Quarter: 2012Q4

REPORT INFORMATION
  Report Type: 
  Country: US (occurrence: US)
  Receive Date: 20121120
  Receipt Date: 20121120
  Transmission Date: 20130627
  Serious: Yes (Other)
  Sender: FDA-Public Use
  Company Number: US-RB-046761-12

PATIENT
  Age: 18 Year
  Sex: Female

DRUGS (2)
  1. DELSYM [Suspect]
     Indication: PRODUCT USED FOR UNKNOWN INDICATION
     Dosage: Took 10ml at 1pm and 1 am on 20-OCT-2012,and on 22-OCT-2012, took a dose at 10am
     Route: 048
     Dates: start: 20121020
  2. WELLBUTRIN [Suspect]
     Indication: PRODUCT USED FOR UNKNOWN INDICATION

REACTIONS (10)
  - Syncope [Unknown]
  - Coordination abnormal [Unknown]
  - Heart rate increased [Unknown]
  - Dysarthria [Unknown]
  - Vision blurred [Unknown]
  - Mydriasis [Unknown]
  - Pallor [Unknown]
  - Feeling abnormal [Not Recovered/Not Resolved]
  - Abasia [Unknown]
  - Contraindication to medical treatment [Unknown]
